FAERS Safety Report 9519437 (Version 4)
Quarter: 2013Q3

REPORT INFORMATION
  Report Type: Spontaneous
  Country: BR (occurrence: BR)
  Receive Date: 20130912
  Receipt Date: 20130927
  Transmission Date: 20140515
  Serious: Yes (Hospitalization)
  Sender: FDA-Public Use
  Company Number: BR-GLAXOSMITHKLINE-A1041220A

PATIENT
  Age: 57 Year
  Sex: Female
  Weight: 69 kg

DRUGS (6)
  1. RYTHMOL [Suspect]
     Indication: ARRHYTHMIA
     Dosage: 300MG TWICE PER DAY
     Route: 048
     Dates: start: 20100201
  2. FLUOXETINE [Concomitant]
     Indication: DEPRESSION
  3. LOSARTAN [Concomitant]
     Indication: BLOOD PRESSURE
  4. SIMVASTATIN [Concomitant]
     Indication: BLOOD CHOLESTEROL ABNORMAL
  5. TYLENOL [Concomitant]
     Indication: HEADACHE
  6. LORAZEPAM [Concomitant]
     Indication: SLEEP DISORDER

REACTIONS (11)
  - Infarction [Recovered/Resolved]
  - Burning sensation [Recovered/Resolved]
  - Chest pain [Recovered/Resolved]
  - Weight bearing difficulty [Recovered/Resolved]
  - Exercise tolerance decreased [Recovered/Resolved]
  - Feeling jittery [Unknown]
  - Catheter placement [Unknown]
  - Nervousness [Unknown]
  - Facial bones fracture [Recovering/Resolving]
  - Pain [Recovering/Resolving]
  - Ill-defined disorder [Recovered/Resolved]
